FAERS Safety Report 18081538 (Version 1)
Quarter: 2020Q3

REPORT INFORMATION
  Report Type: Report from Study
  Country: IE (occurrence: IE)
  Receive Date: 20200728
  Receipt Date: 20200728
  Transmission Date: 20201103
  Serious: Yes (Hospitalization)
  Sender: FDA-Public Use
  Company Number: IE-JNJFOC-20200728808

PATIENT
  Age: 24 Year
  Sex: Female

DRUGS (3)
  1. STELARA [Suspect]
     Active Substance: USTEKINUMAB
     Route: 058
  2. PREDNISOLONE. [Concomitant]
     Active Substance: PREDNISOLONE
     Route: 050
  3. STELARA [Suspect]
     Active Substance: USTEKINUMAB
     Indication: CROHN^S DISEASE
     Route: 042
     Dates: start: 20200515

REACTIONS (2)
  - Pain [Recovered/Resolved]
  - Muscle spasms [Recovered/Resolved]
